FAERS Safety Report 15959535 (Version 1)
Quarter: 2019Q1

REPORT INFORMATION
  Report Type: Spontaneous
  Country: US (occurrence: US)
  Receive Date: 20190214
  Receipt Date: 20190214
  Transmission Date: 20190417
  Serious: No
  Sender: FDA-Public Use
  Company Number: US-TAKEDA-2019TUS003220

PATIENT
  Age: 57 Year
  Sex: Female

DRUGS (1)
  1. NINLARO [Suspect]
     Active Substance: IXAZOMIB CITRATE
     Indication: PLASMA CELL MYELOMA
     Dosage: 4 MILLIGRAM
     Route: 048
     Dates: start: 20190117

REACTIONS (7)
  - Off label use [Unknown]
  - Muscle spasms [Unknown]
  - Balance disorder [Unknown]
  - Muscular weakness [Unknown]
  - Tremor [Unknown]
  - Alopecia [Unknown]
  - Fall [Unknown]
